FAERS Safety Report 11294858 (Version 2)
Quarter: 2015Q3

REPORT INFORMATION
  Report Type: Report from Study
  Country: US (occurrence: None)
  Receive Date: 20150722
  Receipt Date: 20150812
  Transmission Date: 20151125
  Serious: Yes (Life-Threatening, Other)
  Sender: FDA-Public Use
  Company Number: US-2015CRT000526

PATIENT
  Age: 70 Year
  Sex: Female
  Weight: 106.6 kg

DRUGS (11)
  1. BENAZEPRIL [Concomitant]
     Active Substance: BENAZEPRIL HYDROCHLORIDE
  2. SIMVASTATIN. [Concomitant]
     Active Substance: SIMVASTATIN
  3. CARDIZEM /004897010 (DILTIAZEM) [Concomitant]
  4. COUMADIN [Suspect]
     Active Substance: WARFARIN SODIUM
     Indication: PULMONARY EMBOLISM
     Route: 048
  5. BUPROPION. [Concomitant]
     Active Substance: BUPROPION
  6. MELOXICAM. [Concomitant]
     Active Substance: MELOXICAM
  7. CALCIUM WITH VITAMIN D /00944201/ (CALCIUM CARBONATE, COLECALCIFEROL) [Concomitant]
  8. KORLYM [Suspect]
     Active Substance: MIFEPRISTONE
     Indication: PITUITARY-DEPENDENT CUSHING^S SYNDROME
     Route: 048
     Dates: start: 20150602
  9. CLONAZEPAM. [Concomitant]
     Active Substance: CLONAZEPAM
  10. LEVOTHYROXINE. [Concomitant]
     Active Substance: LEVOTHYROXINE
  11. LEXAPRO [Concomitant]
     Active Substance: ESCITALOPRAM OXALATE

REACTIONS (8)
  - Arthralgia [None]
  - Pain in extremity [None]
  - Prothrombin time abnormal [None]
  - International normalised ratio abnormal [None]
  - Myalgia [None]
  - International normalised ratio decreased [None]
  - Fatigue [None]
  - Fall [None]

NARRATIVE: CASE EVENT DATE: 20150602
